FAERS Safety Report 5624000-9 (Version None)
Quarter: 2008Q1

REPORT INFORMATION
  Report Type: 
  Country: None (occurrence: None)
  Receive Date: 20080208
  Receipt Date: 20080208
  Transmission Date: 20080703
  Serious: Yes (Hospitalization)
  Sender: FDA-Public Use
  Company Number: None

PATIENT
  Sex: Female
  Weight: 54.4 kg

DRUGS (6)
  1. CYCLOPHOSPHAMIDE [Suspect]
     Dosage: 1180 MG
  2. DOXORUBICIN HYDROCHLORIDE [Suspect]
     Dosage: 62.8 MG
  3. ETOPOSIDE [Suspect]
     Dosage: 314 MG
  4. PREDNISONE TAB [Suspect]
     Dosage: 1000 MG
  5. RITUXIMAB (MOAB C2B8 ANTI CD20, CHIMERIC) [Suspect]
     Dosage: 589 MG
  6. VINCRISTINE SULFATE [Suspect]
     Dosage: 2.52 MG

REACTIONS (3)
  - ANAEMIA [None]
  - PALPITATIONS [None]
  - SINUS TACHYCARDIA [None]
